FAERS Safety Report 16977413 (Version 3)
Quarter: 2020Q1

REPORT INFORMATION
  Report Type: Spontaneous
  Country: US (occurrence: US)
  Receive Date: 20191031
  Receipt Date: 20200214
  Transmission Date: 20200409
  Serious: Yes (Disabling, Other)
  Sender: FDA-Public Use
  Company Number: US-009507513-1910USA014916

PATIENT
  Age: 54 Year
  Sex: Male
  Weight: 95.24 kg

DRUGS (9)
  1. ISENTRESS [Suspect]
     Active Substance: RALTEGRAVIR POTASSIUM
     Indication: HIV INFECTION
     Dosage: UNK
     Route: 048
     Dates: start: 20190416
  2. DESCOVY [Concomitant]
     Active Substance: EMTRICITABINE\TENOFOVIR ALAFENAMIDE FUMARATE
     Dosage: 1 DOSAGE FORM, QD (TAKE 1 TABLET BY MOUTH DAILY)
     Route: 048
     Dates: start: 201903
  3. LIPITOR [Concomitant]
     Active Substance: ATORVASTATIN CALCIUM
     Dosage: 80 MILLIGRAM
     Route: 048
  4. TOPROL XL [Concomitant]
     Active Substance: METOPROLOL SUCCINATE
     Dosage: 50 MILLIGRAM 24 HR (BY MOUTH DAILY)
     Route: 048
  5. PRINIVIL [Concomitant]
     Active Substance: LISINOPRIL
     Dosage: 30 MILLIGRAM, QD (TAKE 30 MG BY MOUTH DAILY)
     Route: 048
  6. BRILINTA [Concomitant]
     Active Substance: TICAGRELOR
     Dosage: 90 MILLIGRAM, BID (TAKE 90 MG BY MOUTH 2 TIMES DAILY)
     Route: 048
  7. ISENTRESS [Suspect]
     Active Substance: RALTEGRAVIR POTASSIUM
     Dosage: 2 DOSAGE FORM (TAKE 2 TABLETS BY MOUTH)
     Route: 048
     Dates: start: 201903
  8. PREVACID [Concomitant]
     Active Substance: LANSOPRAZOLE
     Dosage: 1 DOSAGE FORM, QD (TAKE 1 CAPSULE BY MOUTH EVERY DAY BEFORE BREAKFAST)
     Route: 048
  9. ALDACTONE [Concomitant]
     Active Substance: SPIRONOLACTONE
     Dosage: 25 MILLIGRAM, QD (TAKE 25 MG BY MOUTH DAILY)
     Route: 048

REACTIONS (5)
  - Coronary artery disease [Unknown]
  - HIV infection [Unknown]
  - Eye infection syphilitic [Not Recovered/Not Resolved]
  - Renal failure [Recovering/Resolving]
  - Hyperkalaemia [Unknown]

NARRATIVE: CASE EVENT DATE: 20191023
